FAERS Safety Report 7441754-X (Version None)
Quarter: 2011Q2

REPORT INFORMATION
  Report Type: 
  Country: None (occurrence: None)
  Receive Date: 20110428
  Receipt Date: 20110419
  Transmission Date: 20111010
  Serious: Yes (Hospitalization)
  Sender: FDA-Public Use
  Company Number: CA-BRISTOL-MYERS SQUIBB COMPANY-14248470

PATIENT
  Age: 68 Year
  Sex: Female

DRUGS (14)
  1. RABEPRAZOLE SODIUM [Concomitant]
  2. PREDNISONE [Concomitant]
  3. FOLIC ACID [Concomitant]
  4. ACTONEL [Concomitant]
  5. VENTOLIN [Concomitant]
  6. ATROVENT [Concomitant]
  7. AMITRIPTYLINE [Concomitant]
  8. OXYCONTIN [Concomitant]
  9. ATIVAN [Concomitant]
  10. ORENCIA [Suspect]
     Indication: RHEUMATOID ARTHRITIS
     Dosage: 8,24JU,19AU,16SE,20OC,9DE08,6JA,3FE,3,31MA9,1:26MY,19JU,23JU,20AU,23SE,19OC,NO,16DE9,10DE10.INF:31
     Route: 042
     Dates: start: 20080626
  11. METFORMIN [Concomitant]
  12. MULTI-VITAMINS [Concomitant]
  13. CENESTIN [Concomitant]
  14. CALCIUM + VITAMIN D [Concomitant]

REACTIONS (10)
  - SEPSIS [None]
  - PAIN [None]
  - FATIGUE [None]
  - INSOMNIA [None]
  - HEART RATE INCREASED [None]
  - NAUSEA [None]
  - MALAISE [None]
  - ASTHENIA [None]
  - RHEUMATOID ARTHRITIS [None]
  - NASOPHARYNGITIS [None]
